FAERS Safety Report 12257402 (Version 2)
Quarter: 2017Q3

REPORT INFORMATION
  Report Type: Report from Study
  Country: AU (occurrence: AU)
  Receive Date: 20160412
  Receipt Date: 20170929
  Transmission Date: 20171127
  Serious: Yes (Death, Hospitalization)
  Sender: FDA-Public Use
  Company Number: AU-TOLMAR, INC.-2016AU003266

PATIENT
  Sex: Male

DRUGS (1)
  1. ELIGARD [Suspect]
     Active Substance: LEUPROLIDE ACETATE
     Indication: PROSTATE CANCER
     Dosage: 22.5 MG, Q3MONTHS
     Route: 065
     Dates: start: 201507, end: 20170626

REACTIONS (4)
  - Bladder cancer [Unknown]
  - Bladder neoplasm surgery [None]
  - Death [Fatal]
  - Metastases to liver [Unknown]
